FAERS Safety Report 4613581-X (Version None)
Quarter: 2005Q1

REPORT INFORMATION
  Report Type: 
  Country: None (occurrence: None)
  Receive Date: 20050321
  Receipt Date: 20050308
  Transmission Date: 20050727
  Serious: Yes (Hospitalization)
  Sender: FDA-Public Use
  Company Number: DE-JNJFOC-20050302116

PATIENT
  Sex: Female
  Weight: 74 kg

DRUGS (10)
  1. CAELYX [Suspect]
     Route: 042
  2. HERCEPTIN [Suspect]
     Route: 042
  3. NOVALGINE [Concomitant]
     Route: 049
  4. METOCLOPRAMIDE HYDROCHLORIDE [Concomitant]
     Route: 049
  5. SELENIUM TRACE METAL ADDITIVE [Concomitant]
     Route: 049
  6. ZINK [Concomitant]
     Route: 049
  7. VITAMIN B COMPLEX CAP [Concomitant]
     Route: 049
  8. VITAMIN B COMPLEX CAP [Concomitant]
     Route: 049
  9. VITAMIN B COMPLEX CAP [Concomitant]
     Route: 049
  10. VITAMIN B COMPLEX CAP [Concomitant]
     Route: 049

REACTIONS (2)
  - DRUG ERUPTION [None]
  - LICHEN PLANUS [None]
